FAERS Safety Report 8686373 (Version 2)
Quarter: 2012Q4

REPORT INFORMATION
  Report Type: 
  Country: US (occurrence: US)
  Receive Date: 20120726
  Receipt Date: 20121112
  Transmission Date: 20130627
  Serious: No
  Sender: FDA-Public Use
  Company Number: US-ASTRAZENECA-2011SE50982

PATIENT
  Age: 54 Year
  Sex: Female

DRUGS (2)
  1. SEROQUEL [Suspect]
     Route: 048
  2. INSULIN [Suspect]
     Route: 065

REACTIONS (6)
  - Insomnia [Unknown]
  - Diabetes mellitus [Unknown]
  - Tremor [Unknown]
  - Nervousness [Unknown]
  - Blood insulin decreased [Unknown]
  - Drug dose omission [Unknown]
